FAERS Safety Report 6470146-5 (Version None)
Quarter: 2009Q4

REPORT INFORMATION
  Report Type: 
  Country: None (occurrence: None)
  Receive Date: 20091203
  Receipt Date: 20071219
  Transmission Date: 20100525
  Serious: Yes (Hospitalization)
  Sender: FDA-Public Use
  Company Number: US-ELI_LILLY_AND_COMPANY-US200712004625

PATIENT
  Sex: Female

DRUGS (3)
  1. FORTEO [Suspect]
     Indication: OSTEOPOROSIS
     Dosage: 20 UG, DAILY (1/D)
     Dates: start: 20070801
  2. LASIX [Concomitant]
     Dosage: 80 MG, UNK
  3. LASIX [Concomitant]
     Dosage: 160 MG, 3/W

REACTIONS (5)
  - ASTHENIA [None]
  - FATIGUE [None]
  - FLUID RETENTION [None]
  - MEMORY IMPAIRMENT [None]
  - SOMNOLENCE [None]
